FAERS Safety Report 6516062-1 (Version None)
Quarter: 2009Q4

REPORT INFORMATION
  Report Type: 
  Country: None (occurrence: None)
  Receive Date: 20091223
  Receipt Date: 20091221
  Transmission Date: 20100525
  Serious: Yes (Hospitalization)
  Sender: FDA-Public Use
  Company Number: US-GILEAD-2009-0025363

PATIENT
  Sex: Female
  Weight: 62.7 kg

DRUGS (8)
  1. LETAIRIS [Suspect]
     Indication: SKIN ULCER
     Route: 048
     Dates: start: 20090720
  2. AMLODIPINE [Concomitant]
  3. PREDNISONE [Concomitant]
     Dates: start: 20090608
  4. REGLAN [Concomitant]
     Dates: start: 20060401
  5. PEPCID [Concomitant]
     Dates: start: 20060401
  6. OMEPRAZOLE [Concomitant]
     Dates: start: 20060401
  7. CALCIUM [Concomitant]
     Dates: start: 20090608
  8. FOLIC ACID [Concomitant]
     Dates: start: 20061101

REACTIONS (2)
  - DYSPNOEA [None]
  - LEUKOPENIA [None]
